FAERS Safety Report 5386732-X (Version None)
Quarter: 2007Q3

REPORT INFORMATION
  Report Type: 
  Country: None (occurrence: None)
  Receive Date: 20070713
  Receipt Date: 20070702
  Transmission Date: 20080115
  Serious: Yes (Hospitalization)
  Sender: FDA-Public Use
  Company Number: JP-ASTRAZENECA-2007AP03784

PATIENT
  Age: 68 Year
  Sex: Female
  Weight: 64 kg

DRUGS (17)
  1. PULMICORT [Suspect]
     Indication: ASTHMA
     Route: 055
     Dates: start: 20070530, end: 20070613
  2. INTERFERON BETA [Suspect]
     Indication: HEPATITIS C
     Route: 041
     Dates: start: 20061005, end: 20061122
  3. INTERFERON BETA [Suspect]
     Indication: HEPATIC CIRRHOSIS
     Route: 041
     Dates: start: 20061005, end: 20061122
  4. INTERFERON BETA [Suspect]
     Route: 041
     Dates: start: 20070301, end: 20070614
  5. INTERFERON BETA [Suspect]
     Route: 041
     Dates: start: 20070301, end: 20070614
  6. ONON [Concomitant]
     Indication: ASTHMA
     Route: 048
     Dates: start: 20070317, end: 20070613
  7. CODEINE PHOSPHATE [Concomitant]
     Indication: COUGH
     Route: 048
     Dates: start: 20070317
  8. AMINOLEBAN [Concomitant]
     Indication: HEPATIC CIRRHOSIS
     Route: 041
  9. AMINOLEBAN [Concomitant]
     Indication: HEPATITIS C
     Route: 041
  10. LASIX [Concomitant]
     Indication: HEPATITIS C
     Route: 048
  11. LASIX [Concomitant]
     Indication: HEPATIC CIRRHOSIS
     Route: 048
  12. GASTER D [Concomitant]
     Route: 048
  13. LOXONIN [Concomitant]
     Route: 048
  14. BLOPRESS [Concomitant]
     Route: 048
  15. MAGNESIUM OXIDE [Concomitant]
     Route: 048
  16. URSO 250 [Concomitant]
     Indication: HEPATITIS C
     Route: 048
  17. URSO 250 [Concomitant]
     Indication: HEPATIC CIRRHOSIS
     Route: 048

REACTIONS (3)
  - COLD SWEAT [None]
  - MALAISE [None]
  - PYREXIA [None]
